FAERS Safety Report 13185495 (Version 3)
Quarter: 2017Q1

REPORT INFORMATION
  Report Type: Spontaneous
  Country: JP (occurrence: JP)
  Receive Date: 20170203
  Receipt Date: 20170317
  Transmission Date: 20170428
  Serious: Yes (Other)
  Sender: FDA-Public Use
  Company Number: JP-ABBVIE-17P-087-1863668-00

PATIENT
  Sex: Female

DRUGS (4)
  1. RIVOTRIL [Interacting]
     Active Substance: CLONAZEPAM
     Indication: MENTAL DISORDER
     Route: 048
  2. HORIZON [Interacting]
     Active Substance: DIAZEPAM
     Indication: MENTAL DISORDER
     Route: 048
  3. CLARITHROMYCIN. [Suspect]
     Active Substance: CLARITHROMYCIN
     Indication: NASOPHARYNGITIS
     Route: 048
  4. LENDORMIN [Interacting]
     Active Substance: BROTIZOLAM
     Indication: MENTAL DISORDER
     Route: 048

REACTIONS (1)
  - Drug interaction [Unknown]

NARRATIVE: CASE EVENT DATE: 20170116
